FAERS Safety Report 18627918 (Version 1)
Quarter: 2020Q4

REPORT INFORMATION
  Report Type: Spontaneous
  Country: US (occurrence: US)
  Receive Date: 20201217
  Receipt Date: 20201217
  Transmission Date: 20210114
  Serious: No
  Sender: FDA-Public Use
  Company Number: US-AMGEN-USASP2020204243

PATIENT
  Sex: Male

DRUGS (1)
  1. EPOGEN [Suspect]
     Active Substance: ERYTHROPOIETIN
     Indication: PRODUCT USED FOR UNKNOWN INDICATION
     Dosage: UNK, (2 VIALS, DOSE 3000U/ML)
     Route: 065

REACTIONS (2)
  - Erythema [Unknown]
  - Product storage error [Unknown]

NARRATIVE: CASE EVENT DATE: 2020
